FAERS Safety Report 9672098 (Version 1)
Quarter: 2013Q4

REPORT INFORMATION
  Report Type: Spontaneous
  Country: FR (occurrence: FR)
  Receive Date: 20131106
  Receipt Date: 20131106
  Transmission Date: 20140711
  Serious: Yes (Hospitalization)
  Sender: FDA-Public Use
  Company Number: FR-B.I. PHARMACEUTICALS,INC./RIDGEFIELD-2013-FF-02639FF

PATIENT
  Age: 61 Year
  Sex: Male

DRUGS (2)
  1. PRADAXA [Suspect]
     Indication: ISCHAEMIC STROKE
     Dosage: 300 MG
     Route: 048
     Dates: start: 20130620, end: 20130911
  2. PRADAXA [Suspect]
     Route: 048
     Dates: start: 20130919, end: 20130925

REACTIONS (1)
  - Gastrointestinal haemorrhage [Recovered/Resolved]
